FAERS Safety Report 7292705-2 (Version None)
Quarter: 2011Q1

REPORT INFORMATION
  Report Type: 
  Country: None (occurrence: None)
  Receive Date: 20110210
  Receipt Date: 20110210
  Transmission Date: 20110831
  Serious: No
  Sender: FDA-Public Use
  Company Number: None

PATIENT
  Age: 62 Year
  Sex: Male
  Weight: 135.73 kg

DRUGS (1)
  1. SULFAMETHOXALE/TRIMETHOPRIM [Suspect]
     Dosage: 800/160 MG BID PO
     Route: 048
     Dates: start: 20101013, end: 20101018

REACTIONS (1)
  - HYPERKALAEMIA [None]
